FAERS Safety Report 6262597-9 (Version None)
Quarter: 2009Q3

REPORT INFORMATION
  Report Type: 
  Country: None (occurrence: None)
  Receive Date: 20090709
  Receipt Date: 20090629
  Transmission Date: 20100115
  Serious: Yes (Hospitalization, Other)
  Sender: FDA-Public Use
  Company Number: NZ-AVENTIS-200916576GDDC

PATIENT
  Age: 62 Year
  Sex: Female

DRUGS (8)
  1. ARAVA [Suspect]
     Dates: start: 20090421
  2. PREDNISONE [Concomitant]
  3. CALCIUM [Concomitant]
     Dosage: DOSE: UNK
  4. FOLIC ACID [Concomitant]
     Dosage: DOSE: UNK
  5. COD LIVER OIL [Concomitant]
     Dosage: DOSE: UNK
  6. GLUCOSAMINE [Concomitant]
     Dosage: DOSE: UNK
  7. MULTI-VITAMINS [Concomitant]
     Dosage: DOSE: UNK
  8. FOSAMAX [Concomitant]
     Dosage: DOSE: UNK

REACTIONS (1)
  - INTRACRANIAL ANEURYSM [None]
